FAERS Safety Report 4458329-7 (Version None)
Quarter: 2004Q3

REPORT INFORMATION
  Report Type: 
  Country: None (occurrence: None)
  Receive Date: 20040924
  Receipt Date: 20040910
  Transmission Date: 20050211
  Serious: Yes (Other)
  Sender: FDA-Public Use
  Company Number: PHBS2004CA12159

PATIENT
  Age: 64 Year
  Sex: Male

DRUGS (4)
  1. NEORAL [Suspect]
     Indication: RENAL TRANSPLANT
     Dosage: 100 MG, BID
     Route: 048
  2. IMURAN [Concomitant]
  3. ATENOLOL [Concomitant]
  4. CARDIZEM [Concomitant]

REACTIONS (1)
  - ANGINA PECTORIS [None]
